FAERS Safety Report 11109143 (Version 2)
Quarter: 2015Q3

REPORT INFORMATION
  Report Type: Report from Study
  Country: GB (occurrence: GB)
  Receive Date: 20150513
  Receipt Date: 20150701
  Transmission Date: 20151125
  Serious: Yes (Death, Hospitalization)
  Sender: FDA-Public Use
  Company Number: GB-SA-2015SA063005

PATIENT
  Sex: Male
  Weight: 72.1 kg

DRUGS (1)
  1. CABAZITAXEL [Suspect]
     Active Substance: CABAZITAXEL
     Indication: PROSTATE CANCER METASTATIC
     Route: 065
     Dates: start: 20131031, end: 20131031

REACTIONS (2)
  - Cardiac arrest [Fatal]
  - Neutropenic infection [Fatal]

NARRATIVE: CASE EVENT DATE: 20131107
